FAERS Safety Report 8163069-7 (Version None)
Quarter: 2012Q1

REPORT INFORMATION
  Report Type: 
  Country: None (occurrence: None)
  Receive Date: 20120224
  Receipt Date: 20120127
  Transmission Date: 20120608
  Serious: Yes (Other)
  Sender: FDA-Public Use
  Company Number: US-GLAXOSMITHKLINE-A0963525A

PATIENT
  Age: 69 Year
  Sex: Female

DRUGS (2)
  1. ADVAIR DISKUS 100/50 [Suspect]
     Indication: ASTHMA
     Dosage: 1PUFF PER DAY
     Route: 055
     Dates: start: 20120123, end: 20120125
  2. NO CONCURRENT MEDICATION [Concomitant]

REACTIONS (3)
  - ASTHMA [None]
  - DYSPHONIA [None]
  - DYSPNOEA [None]
